FAERS Safety Report 7539608-3 (Version None)
Quarter: 2011Q2

REPORT INFORMATION
  Report Type: 
  Country: None (occurrence: None)
  Receive Date: 20110610
  Receipt Date: 20110603
  Transmission Date: 20111010
  Serious: Yes (Other)
  Sender: FDA-Public Use
  Company Number: US-BRISTOL-MYERS SQUIBB COMPANY-15802721

PATIENT
  Age: 69 Year
  Sex: Male
  Weight: 82 kg

DRUGS (3)
  1. COUMADIN [Suspect]
     Indication: CORONARY ARTERY BYPASS
     Dosage: 3MG 23,24APR11,29APR,30APR11.  2 MG 25APR11,28APR11. 1 MG 01MAY2011-UNK
     Route: 065
     Dates: start: 20110423
  2. ANGIOMAX [Suspect]
     Indication: CORONARY ARTERY BYPASS
     Dosage: INJ.60.5MG,138.6MG(26APR-UNK),121MG,191MG(27APR),199MG 28,29APR,16.6MG 29,30APR,1MAY,22.2MG 04MAY11
     Route: 042
     Dates: start: 20110425
  3. HEPARIN SODIUM [Suspect]
     Dosage: HEPARIN DISCONTINUED
     Dates: start: 20110420

REACTIONS (5)
  - THROMBOCYTOPENIA [None]
  - INTERNATIONAL NORMALISED RATIO FLUCTUATION [None]
  - RESPIRATORY FAILURE [None]
  - SUBCLAVIAN ARTERY THROMBOSIS [None]
  - RENAL IMPAIRMENT [None]
